FAERS Safety Report 10197766 (Version 2)
Quarter: 2014Q2

REPORT INFORMATION
  Report Type: Spontaneous
  Country: DK (occurrence: DK)
  Receive Date: 20140527
  Receipt Date: 20140623
  Transmission Date: 20141212
  Serious: Yes (Hospitalization, Other)
  Sender: FDA-Public Use
  Company Number: DK-JNJFOC-20140515097

PATIENT
  Sex: Male
  Weight: 4.4 kg

DRUGS (1)
  1. TRAMADOL HYDROCHLORIDE [Suspect]
     Indication: POST-TRAUMATIC NECK SYNDROME
     Route: 064

REACTIONS (3)
  - Drug withdrawal syndrome [Recovered/Resolved]
  - Respiratory disorder [Unknown]
  - Foetal exposure during pregnancy [Recovered/Resolved]
